FAERS Safety Report 7910231-1 (Version None)
Quarter: 2011Q4

REPORT INFORMATION
  Report Type: 
  Country: None (occurrence: None)
  Receive Date: 20111111
  Receipt Date: 20111104
  Transmission Date: 20120403
  Serious: Yes (Other)
  Sender: FDA-Public Use
  Company Number: US-JNJFOC-20111102591

PATIENT
  Sex: Female
  Weight: 68.04 kg

DRUGS (4)
  1. NAPROXEN [Concomitant]
     Indication: MIGRAINE PROPHYLAXIS
     Route: 048
     Dates: start: 20090101
  2. TOPAMAX [Suspect]
     Indication: MIGRAINE PROPHYLAXIS
     Route: 048
     Dates: start: 20100901
  3. TOPAMAX [Suspect]
     Route: 048
     Dates: start: 20090101, end: 20100801
  4. TOPIRAMATE [Suspect]
     Indication: MIGRAINE PROPHYLAXIS
     Route: 048
     Dates: start: 20100801, end: 20100901

REACTIONS (4)
  - DYSGEUSIA [None]
  - HEADACHE [None]
  - BRAIN NEOPLASM [None]
  - THERAPEUTIC RESPONSE UNEXPECTED WITH DRUG SUBSTITUTION [None]
